FAERS Safety Report 4625654-6 (Version None)
Quarter: 2005Q1

REPORT INFORMATION
  Report Type: 
  Country: None (occurrence: None)
  Receive Date: 20050330
  Receipt Date: 20050310
  Transmission Date: 20050727
  Serious: Yes (Hospitalization)
  Sender: FDA-Public Use
  Company Number: FR_050306022

PATIENT
  Age: 60 Year
  Sex: Male

DRUGS (7)
  1. GEMZAR [Suspect]
     Indication: PANCREATIC CARCINOMA
     Dosage: 1000 MG/M2/1 OTHER
     Route: 050
     Dates: start: 20030101, end: 20030101
  2. OXALIPLATINE [Suspect]
     Indication: PANCREATIC CARCINOMA
     Dosage: 100 MG/M2/1 OTHER
     Route: 050
     Dates: start: 20030101, end: 20030101
  3. GEMZAR [Suspect]
     Indication: PANCREATIC CARCINOMA
     Dosage: 100 MG/M2 /1 WEEK
     Dates: start: 20030101, end: 20030101
  4. RADIATION THERAPY [Suspect]
     Indication: PANCREATIC CARCINOMA
     Dosage: 2 GRAY DAY
     Dates: start: 20030101, end: 20030101
  5. FLUOROURACIL [Concomitant]
  6. CISPLATIN [Concomitant]
  7. LEDERFOLINE (CALCIUM FOLINATE) [Suspect]

REACTIONS (3)
  - DEEP VEIN THROMBOSIS [None]
  - JUGULAR VEIN THROMBOSIS [None]
  - PYREXIA [None]
